FAERS Safety Report 10079456 (Version 3)
Quarter: 2014Q2

REPORT INFORMATION
  Report Type: Spontaneous
  Country: JP (occurrence: JP)
  Receive Date: 20140415
  Receipt Date: 20140612
  Transmission Date: 20141212
  Serious: Yes (Death)
  Sender: FDA-Public Use
  Company Number: JP-BRISTOL-MYERS SQUIBB COMPANY-19837970

PATIENT
  Age: 67 Year
  Sex: Male
  Weight: 55 kg

DRUGS (3)
  1. ERBITUX SOLN FOR INF 5MG/ML [Suspect]
     Indication: HEAD AND NECK CANCER
     Dosage: ALSO 250MG/M2.21MAR13-13NOV13, UNK-27NOV13.NO OF INF:34.
     Route: 041
     Dates: start: 20130321, end: 20131127
  2. ERBITUX SOLN FOR INF 5MG/ML [Suspect]
     Indication: LARYNGEAL CANCER
     Dosage: ALSO 250MG/M2.21MAR13-13NOV13, UNK-27NOV13.NO OF INF:34.
     Route: 041
     Dates: start: 20130321, end: 20131127
  3. CISPLATIN [Concomitant]
     Indication: LARYNGEAL CANCER
     Route: 041

REACTIONS (2)
  - Hyperkalaemia [Fatal]
  - Chest pain [Fatal]
